FAERS Safety Report 6406787-0 (Version None)
Quarter: 2009Q4

REPORT INFORMATION
  Report Type: 
  Country: None (occurrence: None)
  Receive Date: 20091020
  Receipt Date: 20090925
  Transmission Date: 20100525
  Serious: Yes (Other)
  Sender: FDA-Public Use
  Company Number: US-PFIZER INC-2009229602

PATIENT
  Sex: Female
  Weight: 68 kg

DRUGS (6)
  1. XALATAN [Suspect]
     Indication: GLAUCOMA
     Dosage: 1 GTT, 1X/DAY
     Route: 047
     Dates: start: 20050808, end: 20061001
  2. XALATAN [Suspect]
     Dosage: 1 GTT, 1X/DAY
     Route: 047
     Dates: start: 20070101, end: 20070401
  3. TIMOPTIC-XE [Suspect]
     Indication: GLAUCOMA
     Dosage: UNK
     Dates: start: 20061023, end: 20070322
  4. TIMOPTIC-XE [Suspect]
     Dosage: UNK
     Dates: end: 20081125
  5. LEVOXYL [Concomitant]
     Dosage: UNK
  6. PREMPRO [Concomitant]
     Dosage: 1 DF, 1X/DAY
     Route: 048

REACTIONS (7)
  - BRAIN NEOPLASM [None]
  - DIZZINESS [None]
  - DRUG HYPERSENSITIVITY [None]
  - HEADACHE [None]
  - INTRAOCULAR PRESSURE INCREASED [None]
  - SLEEP DISORDER [None]
  - VERTIGO [None]
